FAERS Safety Report 5903251-X (Version None)
Quarter: 2008Q3

REPORT INFORMATION
  Report Type: 
  Country: None (occurrence: None)
  Receive Date: 20080930
  Receipt Date: 20080916
  Transmission Date: 20090109
  Serious: Yes (Hospitalization)
  Sender: FDA-Public Use
  Company Number: FI-GENENTECH-268467

PATIENT
  Age: 41 Year
  Sex: Male

DRUGS (3)
  1. AVASTIN [Suspect]
     Indication: COLON CANCER
     Dosage: UNK
     Dates: start: 20080905, end: 20080905
  2. XELODA [Concomitant]
     Indication: COLON CANCER
     Dosage: UNK
     Dates: start: 20080811
  3. OXALIPLATIN [Concomitant]
     Indication: COLON CANCER
     Dosage: UNK
     Dates: start: 20080811

REACTIONS (1)
  - INTESTINAL OBSTRUCTION [None]
